FAERS Safety Report 8837582 (Version 1)
Quarter: 2012Q4

REPORT INFORMATION
  Report Type: 
  Country: SE (occurrence: SE)
  Receive Date: 20121012
  Receipt Date: 20121012
  Transmission Date: 20130627
  Serious: Yes (Other)
  Sender: FDA-Public Use
  Company Number: SE-JNJFOC-20121004791

PATIENT
  Sex: Female

DRUGS (2)
  1. TOPIMAX [Suspect]
     Indication: HEADACHE
     Route: 048
     Dates: start: 201205
  2. TOPIMAX [Suspect]
     Indication: HEADACHE
     Route: 048
     Dates: end: 2011

REACTIONS (1)
  - Maculopathy [Recovered/Resolved with Sequelae]
